FAERS Safety Report 14012798 (Version 1)
Quarter: 2017Q3

REPORT INFORMATION
  Report Type: Spontaneous
  Country: US (occurrence: US)
  Receive Date: 20170926
  Receipt Date: 20170926
  Transmission Date: 20171128
  Serious: No
  Sender: FDA-Public Use
  Company Number: US-CELGENEUS-USA-20170906448

PATIENT
  Age: 50 Year
  Sex: Male

DRUGS (3)
  1. OTEZLA [Suspect]
     Active Substance: APREMILAST
     Indication: OFF LABEL USE
     Dosage: DAY-2, 20 MILLIGRAM
     Route: 048
     Dates: start: 20170905
  2. OTEZLA [Suspect]
     Active Substance: APREMILAST
     Indication: DERMATITIS
     Dosage: DAY-1, 10 MILLIGRAM
     Route: 048
     Dates: start: 20170904
  3. OTEZLA [Suspect]
     Active Substance: APREMILAST
     Dosage: DAY-3 ,10MG IN AM+20MG IN PM
     Route: 048
     Dates: start: 20170906

REACTIONS (2)
  - Diarrhoea [Not Recovered/Not Resolved]
  - Nausea [Not Recovered/Not Resolved]

NARRATIVE: CASE EVENT DATE: 20170906
